FAERS Safety Report 16382032 (Version 1)
Quarter: 2019Q2

REPORT INFORMATION
  Report Type: Spontaneous
  Country: CA (occurrence: CA)
  Receive Date: 20190603
  Receipt Date: 20190603
  Transmission Date: 20190711
  Serious: Yes (Other)
  Sender: FDA-Public Use
  Company Number: CA-TEVA-2019-CA-1057487

PATIENT
  Age: 46 Year
  Sex: Female

DRUGS (2)
  1. LORAZEPAM. [Suspect]
     Active Substance: LORAZEPAM
     Indication: PRODUCT USED FOR UNKNOWN INDICATION
     Route: 065
  2. SPIRONOLACTONE. [Suspect]
     Active Substance: SPIRONOLACTONE
     Indication: ACNE CYSTIC
     Dosage: 100 MILLIGRAM DAILY;
     Route: 065

REACTIONS (5)
  - Amnesia [Unknown]
  - Feeling abnormal [Unknown]
  - Suicidal ideation [Unknown]
  - Agitation [Unknown]
  - Product use in unapproved indication [Unknown]
